FAERS Safety Report 7382492-1 (Version None)
Quarter: 2011Q1

REPORT INFORMATION
  Report Type: 
  Country: None (occurrence: None)
  Receive Date: 20110329
  Receipt Date: 20110316
  Transmission Date: 20110831
  Serious: Yes (Life-Threatening)
  Sender: FDA-Public Use
  Company Number: JP-BAYER-201012802BYL

PATIENT
  Sex: Female

DRUGS (13)
  1. KLARICID [Concomitant]
  2. ZITHROMAX [Concomitant]
  3. MUCOSOLVAN [Concomitant]
  4. ZITHROMAX [Concomitant]
     Indication: PNEUMONIA
     Route: 048
     Dates: start: 20100430, end: 20100511
  5. AMPICILLIN SODIUM/SULBACTAM SODIUM [Concomitant]
  6. RIMACTANE [Concomitant]
     Indication: PNEUMONIA
     Route: 048
     Dates: start: 20100501, end: 20100503
  7. KLARICID [Concomitant]
     Indication: PNEUMONIA
     Route: 048
     Dates: start: 20100428
  8. CRAVIT [Suspect]
     Indication: PNEUMONIA
     Dosage: 500 MG (DAILY DOSE), , ORAL
     Route: 048
     Dates: start: 20100419, end: 20100421
  9. RIMACTANE [Concomitant]
  10. AMPICILLIN SODIUM/SULBACTAM SODIUM [Concomitant]
     Indication: PNEUMONIA
     Route: 041
     Dates: start: 20100430, end: 20100506
  11. MUCOSOLVAN [Concomitant]
     Indication: PNEUMONIA
     Route: 048
     Dates: start: 20100430, end: 20100504
  12. AVELOX [Suspect]
     Indication: PNEUMONIA
     Route: 048
     Dates: start: 20100501, end: 20100507
  13. AVELOX [Suspect]

REACTIONS (1)
  - PNEUMONIA [None]
